FAERS Safety Report 9067816 (Version 3)
Quarter: 2013Q2

REPORT INFORMATION
  Report Type: Spontaneous
  Country: US (occurrence: US)
  Receive Date: 20130128
  Receipt Date: 20130516
  Transmission Date: 20140414
  Serious: Yes (Death, Hospitalization, Other)
  Sender: FDA-Public Use
  Company Number: US-ELI_LILLY_AND_COMPANY-US201301005817

PATIENT
  Age: 87 Year
  Sex: Female

DRUGS (5)
  1. ZYPREXA [Suspect]
     Indication: AGGRESSION
     Dosage: 2.5 MG, PRN
  2. ZYPREXA [Suspect]
     Dosage: 10 MG, QD
  3. ZYPREXA [Suspect]
     Dosage: 1 DF, UNKNOWN
     Dates: start: 201209
  4. ZYPREXA [Suspect]
     Indication: AGGRESSION
     Dosage: 1 DF, UNKNOWN
     Route: 030
     Dates: start: 20130101, end: 20130108
  5. NORCO [Concomitant]

REACTIONS (6)
  - Death [Fatal]
  - Urosepsis [Unknown]
  - Hypotension [Unknown]
  - Heart rate decreased [Unknown]
  - Hypersomnia [Unknown]
  - Off label use [Unknown]
